FAERS Safety Report 17444338 (Version 1)
Quarter: 2020Q1

REPORT INFORMATION
  Report Type: Spontaneous
  Country: US (occurrence: US)
  Receive Date: 20200221
  Receipt Date: 20200221
  Transmission Date: 20200409
  Serious: Yes (Hospitalization, Other)
  Sender: FDA-Public Use
  Company Number: None

PATIENT
  Age: 32 Year
  Sex: Female

DRUGS (4)
  1. DRAMAMINE [Concomitant]
     Active Substance: DIMENHYDRINATE
  2. TYLENOL [Concomitant]
     Active Substance: ACETAMINOPHEN
  3. LO/OVRAL [Suspect]
     Active Substance: ETHINYL ESTRADIOL\NORGESTREL
     Indication: MENORRHAGIA
     Route: 048
     Dates: start: 19960801, end: 20131115
  4. BENADRYL [Concomitant]
     Active Substance: DIPHENHYDRAMINE HYDROCHLORIDE

REACTIONS (6)
  - Emotional disorder [None]
  - Hepatic function abnormal [None]
  - Pain [None]
  - Drug monitoring procedure not performed [None]
  - Mental disorder [None]
  - Hepatic adenoma [None]

NARRATIVE: CASE EVENT DATE: 20131230
